FAERS Safety Report 18001122 (Version 2)
Quarter: 2020Q3

REPORT INFORMATION
  Report Type: Spontaneous
  Country: NL (occurrence: NL)
  Receive Date: 20200709
  Receipt Date: 20200717
  Transmission Date: 20201103
  Serious: Yes (Life-Threatening, Other)
  Sender: FDA-Public Use
  Company Number: NL-TEVA-2020-NL-1798400

PATIENT
  Sex: Female
  Weight: 60 kg

DRUGS (2)
  1. SUFENTA [Interacting]
     Active Substance: SUFENTANIL CITRATE
     Indication: ANALGESIC THERAPY
     Dosage: 2.5 MCG / HOUR, 1DOSAGE FORM
     Dates: start: 2020
  2. LINEZOLIDLINEZOLID TABLET FO 600MG [Suspect]
     Active Substance: LINEZOLID
     Indication: INFECTION
     Dosage: 1200 MILLIGRAM DAILY; 2X / DAY
     Dates: start: 2020

REACTIONS (4)
  - Hyperthermia [Recovered/Resolved]
  - Haemodynamic instability [Recovered/Resolved]
  - Serotonin syndrome [Unknown]
  - Drug interaction [Unknown]
